FAERS Safety Report 4690011-3 (Version None)
Quarter: 2005Q2

REPORT INFORMATION
  Report Type: 
  Country: None (occurrence: None)
  Receive Date: 20050513
  Receipt Date: 20041207
  Transmission Date: 20051028
  Serious: Yes (Other)
  Sender: FDA-Public Use
  Company Number: 2004-123415-NL

PATIENT
  Age: 32 Year
  Sex: Female
  Weight: 104.5 kg

DRUGS (4)
  1. ZEMURON [Suspect]
     Dosage: 10 MG ONCE INTRAVENOUS (NOS)
     Route: 042
     Dates: start: 20041203, end: 20041203
  2. SUCCINYLCHOLINE [Concomitant]
  3. PROPOFOL [Concomitant]
  4. LEVOXYL [Concomitant]

REACTIONS (1)
  - ANAPHYLACTOID REACTION [None]
